FAERS Safety Report 5466064-1 (Version None)
Quarter: 2007Q3

REPORT INFORMATION
  Report Type: 
  Country: None (occurrence: None)
  Receive Date: 20070919
  Receipt Date: 20070907
  Transmission Date: 20080115
  Serious: Yes (Other)
  Sender: FDA-Public Use
  Company Number: 144-20785-07090128

PATIENT
  Age: 56 Year
  Sex: Female

DRUGS (3)
  1. THALIDOMIDE [Suspect]
     Dosage: 200 MG, 1 IN 1 D, ORAL
     Route: 048
     Dates: start: 20070522, end: 20070816
  2. DEXAMETHASONE TAB [Suspect]
     Dosage: 40 MG, DAILY, ORAL
     Route: 048
     Dates: start: 20070522, end: 20070818
  3. VELCADE [Suspect]
     Dosage: 2.41 MG, DAILY, INTRAVENOUS
     Route: 042
     Dates: start: 20070522, end: 20070814

REACTIONS (1)
  - ANOSMIA [None]
